FAERS Safety Report 6732855-X (Version None)
Quarter: 2010Q2

REPORT INFORMATION
  Report Type: 
  Country: None (occurrence: None)
  Receive Date: 20100519
  Receipt Date: 20100506
  Transmission Date: 20101027
  Serious: Yes (Hospitalization, Disabling, Other)
  Sender: FDA-Public Use
  Company Number: US-ELI_LILLY_AND_COMPANY-US200911005489

PATIENT
  Sex: Male
  Weight: 90.703 kg

DRUGS (12)
  1. ZYPREXA [Suspect]
     Dosage: 15 MG, DAILY (1/D)
     Dates: start: 20050201, end: 20070701
  2. ZYPREXA [Suspect]
     Dosage: 10 MG, UNK
     Dates: end: 20070704
  3. CARDIZEM CD [Concomitant]
     Dosage: 360 MG, DAILY (1/D)
  4. HALOPERIDOL [Concomitant]
     Dosage: 2 MG, EACH MORNING
  5. HALOPERIDOL [Concomitant]
     Dosage: 5 MG, EACH EVENING
  6. CLONIDINE HCL [Concomitant]
     Dosage: 0.2 MG, 2/D
  7. GEMFIBROZIL [Concomitant]
     Dosage: 600 MG, UNK
  8. ATENOLOL [Concomitant]
  9. SEROQUEL [Concomitant]
     Dosage: 100 MG, DAILY (1/D)
     Route: 048
  10. FUROSEMIDE [Concomitant]
     Dosage: 40 MG, DAILY (1/D)
     Route: 048
  11. DILANTIN [Concomitant]
     Dosage: 100 MG, 3/D
  12. AGGRENOX [Concomitant]
     Dosage: 1 D/F, 2/D

REACTIONS (8)
  - ACUTE PRERENAL FAILURE [None]
  - DIABETES MELLITUS [None]
  - DIABETIC COMA [None]
  - DIABETIC KETOACIDOSIS [None]
  - HYPERTENSION [None]
  - METABOLIC DISORDER [None]
  - OBESITY [None]
  - WEIGHT INCREASED [None]
